FAERS Safety Report 16934782 (Version 2)
Quarter: 2019Q4

REPORT INFORMATION
  Report Type: Report from Study
  Country: None (occurrence: BE)
  Receive Date: 20191018
  Receipt Date: 20191024
  Transmission Date: 20200122
  Serious: Yes (Death, Other)
  Sender: FDA-Public Use
  Company Number: BE-ABBVIE-19K-013-2966136-00

PATIENT
  Sex: Female

DRUGS (10)
  1. L-THYROXINE [Concomitant]
     Active Substance: LEVOTHYROXINE
     Indication: PRODUCT USED FOR UNKNOWN INDICATION
  2. DUODOPA [Suspect]
     Active Substance: CARBIDOPA\LEVODOPA
     Indication: PARKINSON^S DISEASE
     Dosage: MD=10ML, CD=2ML/HR DURING 16HRS, ED=1ML
     Route: 050
     Dates: start: 20150202, end: 20150203
  3. PANTOMED [Concomitant]
     Indication: PRODUCT USED FOR UNKNOWN INDICATION
  4. DUODOPA [Suspect]
     Active Substance: CARBIDOPA\LEVODOPA
     Dosage: DOSES CONTINUOUSLY MONITORED AND ADAPTED
     Route: 050
     Dates: start: 20150203, end: 20190923
  5. XADAGO [Concomitant]
     Active Substance: SAFINAMIDE MESYLATE
     Indication: PRODUCT USED FOR UNKNOWN INDICATION
  6. L-THYROXINE [Concomitant]
     Active Substance: LEVOTHYROXINE
  7. TEMESTA [Concomitant]
     Indication: PRODUCT USED FOR UNKNOWN INDICATION
     Dosage: ONCE A DAY IF NECESSARY
  8. DUODOPA [Suspect]
     Active Substance: CARBIDOPA\LEVODOPA
     Dosage: MD=5ML, CD=3.8ML/HR DURING 16HRS, ED=2ML, ND=2ML/HR DURING 8HRS
     Route: 050
     Dates: start: 20190923
  9. TRAZOLAN [Concomitant]
     Active Substance: TRAZODONE HYDROCHLORIDE
     Indication: PRODUCT USED FOR UNKNOWN INDICATION
  10. TRAZOLAN [Concomitant]
     Active Substance: TRAZODONE HYDROCHLORIDE

REACTIONS (5)
  - General physical health deterioration [Unknown]
  - Parkinson^s disease [Fatal]
  - Hypophagia [Unknown]
  - Fluid intake reduced [Unknown]
  - Unresponsive to stimuli [Unknown]
